FAERS Safety Report 11559216 (Version 4)
Quarter: 2018Q3

REPORT INFORMATION
  Report Type: Spontaneous
  Country: DE (occurrence: DE)
  Receive Date: 20150928
  Receipt Date: 20180910
  Transmission Date: 20181010
  Serious: Yes (Life-Threatening, Hospitalization, Other)
  Sender: FDA-Public Use
  Company Number: DE-MYLANLABS-2015M1032088

PATIENT
  Age: 19 Year
  Sex: Female

DRUGS (10)
  1. ACETAMINOPHEN. [Suspect]
     Active Substance: ACETAMINOPHEN
     Indication: PRODUCT USED FOR UNKNOWN INDICATION
     Dosage: UNK
  2. ACETYLCYSTEIN [Concomitant]
     Active Substance: ACETYLCYSTEINE
     Indication: HEPATIC FAILURE
     Dosage: UNK
  3. ADALIMUMAB RECOMBINANT [Suspect]
     Active Substance: ADALIMUMAB
     Indication: CROHN^S DISEASE
     Dosage: 80 MG, QD, ADMINISTERED SECOND DOSE 80 MILLIGRAM 4 DAYS BEFORE ADMISSION
     Route: 065
     Dates: start: 20140101, end: 20140301
  4. COTRIMOXAZOLE [Concomitant]
     Active Substance: SULFAMETHOXAZOLE\TRIMETHOPRIM
     Indication: PROPHYLAXIS
     Dosage: UNK
     Route: 065
     Dates: start: 20140201, end: 20140301
  5. AZATHIOPRINE. [Suspect]
     Active Substance: AZATHIOPRINE
     Indication: IMMUNOSUPPRESSION
  6. ADALIMUMAB RECOMBINANT [Suspect]
     Active Substance: ADALIMUMAB
     Indication: IMMUNOSUPPRESSION
     Dosage: 160 MG, QD
     Route: 065
     Dates: start: 20140201, end: 20140201
  7. PREDNISOLONE. [Suspect]
     Active Substance: PREDNISOLONE
     Indication: CROHN^S DISEASE
     Dosage: 25 MG, QD
     Route: 065
     Dates: start: 20130201, end: 20140301
  8. COTRIMOXAZOLE [Concomitant]
     Active Substance: SULFAMETHOXAZOLE\TRIMETHOPRIM
     Indication: CROHN^S DISEASE
  9. AZATHIOPRINE. [Suspect]
     Active Substance: AZATHIOPRINE
     Indication: CROHN^S DISEASE
     Dosage: 150 MG, QD
     Dates: start: 20130201, end: 20140301
  10. PREDNISOLONE. [Suspect]
     Active Substance: PREDNISOLONE
     Indication: IMMUNOSUPPRESSION

REACTIONS (28)
  - Abdominal tenderness [Unknown]
  - C-reactive protein increased [Recovered/Resolved]
  - Herpes virus infection [Recovered/Resolved]
  - Hepatocellular injury [Recovered/Resolved]
  - Herpes simplex sepsis [Recovered/Resolved]
  - Malaise [Unknown]
  - Pyrexia [Unknown]
  - International normalised ratio decreased [Recovered/Resolved]
  - Prothrombin level abnormal [Recovered/Resolved]
  - Immunosuppression [Recovered/Resolved]
  - Hepatic necrosis [Recovered/Resolved]
  - International normalised ratio increased [Unknown]
  - Alanine aminotransferase increased [Recovered/Resolved]
  - Biopsy liver abnormal [Recovered/Resolved]
  - General physical health deterioration [Recovered/Resolved]
  - Skin erosion [Recovered/Resolved]
  - Crohn^s disease [Unknown]
  - Abdominal pain [Unknown]
  - Lymphocytic infiltration [Recovered/Resolved]
  - Herpes simplex hepatitis [Recovered/Resolved]
  - Pancytopenia [Unknown]
  - Hepatitis [Recovered/Resolved]
  - Herpes simplex [Recovered/Resolved]
  - Hepatitis viral [Recovered/Resolved]
  - Aspartate aminotransferase increased [Recovered/Resolved]
  - Transaminases increased [Unknown]
  - Sepsis [Recovered/Resolved]
  - Coagulopathy [Recovered/Resolved]

NARRATIVE: CASE EVENT DATE: 2014
